FAERS Safety Report 6706650-1 (Version None)
Quarter: 2010Q2

REPORT INFORMATION
  Report Type: 
  Country: None (occurrence: None)
  Receive Date: 20100503
  Receipt Date: 20100428
  Transmission Date: 20101027
  Serious: Yes (Hospitalization)
  Sender: FDA-Public Use
  Company Number: FR-ROCHE-700246

PATIENT
  Age: 86 Year
  Sex: Female

DRUGS (2)
  1. ROCEPHIN [Suspect]
     Indication: BRONCHOPNEUMOPATHY
     Dosage: ROUTE: IV INFUSION. FORM: POWDER FOR SOLUTION FOR INJECTION.
     Route: 042
     Dates: start: 20100323, end: 20100323
  2. CLAMOXYL [Suspect]
     Indication: BRONCHOPNEUMOPATHY
     Dosage: ROUTE: IV INFUSION. FORM: POWDER AND SOLVENT FOR SOLUTION FOR INJECTION.
     Route: 042
     Dates: start: 20100324, end: 20100324

REACTIONS (2)
  - ASTHENIA [None]
  - RASH [None]
